FAERS Safety Report 4471772-5 (Version None)
Quarter: 2004Q4

REPORT INFORMATION
  Report Type: 
  Country: None (occurrence: None)
  Receive Date: 20041012
  Receipt Date: 20040823
  Transmission Date: 20050328
  Serious: Yes (Hospitalization, Other)
  Sender: FDA-Public Use
  Company Number: CH-BRISTOL-MYERS SQUIBB COMPANY-12684429

PATIENT
  Age: 39 Year
  Sex: Male

DRUGS (4)
  1. EFAVIRENZ CAPS 600 MG [Suspect]
     Indication: HIV INFECTION
     Route: 048
     Dates: start: 20020516, end: 20040821
  2. COMBIVIR [Suspect]
     Dates: end: 20031103
  3. VIREAD [Suspect]
     Indication: HIV INFECTION
     Route: 048
     Dates: start: 20031103, end: 20040821
  4. LAMIVUDINE [Suspect]
     Indication: HIV INFECTION
     Route: 048
     Dates: start: 20031103, end: 20040821

REACTIONS (2)
  - NEUTROPENIA [None]
  - RHABDOMYOLYSIS [None]
